FAERS Safety Report 8435926-5 (Version None)
Quarter: 2012Q2

REPORT INFORMATION
  Report Type: 
  Country: None (occurrence: None)
  Receive Date: 20120614
  Receipt Date: 20120605
  Transmission Date: 20120825
  Serious: Yes (Death)
  Sender: FDA-Public Use
  Company Number: MX-SANOFI-AVENTIS-2012SA040277

PATIENT
  Age: 83 Year
  Sex: Female

DRUGS (3)
  1. INSULIN [Concomitant]
     Dates: end: 20060101
  2. LANTUS [Suspect]
     Indication: TYPE 2 DIABETES MELLITUS
     Route: 058
     Dates: start: 20060101, end: 20101210
  3. ALL OTHER THERAPEUTIC PRODUCTS [Concomitant]
     Dates: end: 20060101

REACTIONS (2)
  - HYPERGLYCAEMIA [None]
  - RENAL CANCER [None]
